FAERS Safety Report 21885019 (Version 1)
Quarter: 2023Q1

REPORT INFORMATION
  Report Type: Spontaneous
  Country: ES (occurrence: ES)
  Receive Date: 20230119
  Receipt Date: 20230119
  Transmission Date: 20230418
  Serious: Yes (Hospitalization)
  Sender: FDA-Public Use
  Company Number: None

PATIENT
  Age: 80 Year
  Sex: Male

DRUGS (5)
  1. LORAZEPAM [Suspect]
     Active Substance: LORAZEPAM
     Indication: Anxiety
     Dosage: 5.0 MG, 1X/DAY, EVERY 24 HOURS
     Route: 048
     Dates: start: 20220727, end: 20220813
  2. PARAFLUDETEN [Concomitant]
     Indication: Osteoarthritis
     Dosage: 650.0 MG, 3X/DAY, BREAKFAST, LUNCH AND DINNER
     Route: 048
     Dates: start: 20211214
  3. OMEPRAZOLE [Concomitant]
     Active Substance: OMEPRAZOLE
     Indication: Gastrooesophageal reflux disease
     Dosage: 20.0 MG, 1X/DAY, BEFORE BREAKFAST
     Route: 048
     Dates: start: 20201117
  4. HERBALS\SAW PALMETTO [Concomitant]
     Active Substance: HERBALS\SAW PALMETTO
     Indication: Benign prostatic hyperplasia
     Dosage: 160.0 MG, 2X/DAY, BREAKFAST AND DINNER
     Route: 048
     Dates: start: 20211203
  5. DUTASTERIDE\TAMSULOSIN [Concomitant]
     Active Substance: DUTASTERIDE\TAMSULOSIN
     Indication: Benign prostatic hyperplasia
     Dosage: 1 DF, 1X/DAY, 1.0 CAPSULE AT BREAKFAST
     Route: 048
     Dates: start: 20190601

REACTIONS (3)
  - Dysarthria [Recovered/Resolved]
  - Confusional state [Recovered/Resolved]
  - Asthenia [Recovered/Resolved]

NARRATIVE: CASE EVENT DATE: 20220813
